FAERS Safety Report 11465591 (Version 2)
Quarter: 2015Q3

REPORT INFORMATION
  Report Type: Spontaneous
  Country: BR (occurrence: BR)
  Receive Date: 20150907
  Receipt Date: 20150911
  Transmission Date: 20151125
  Serious: Yes (Other)
  Sender: FDA-Public Use
  Company Number: BR-AMGEN-BRASP2014085273

PATIENT
  Age: 43 Year
  Sex: Female
  Weight: 100 kg

DRUGS (12)
  1. ENBREL [Suspect]
     Active Substance: ETANERCEPT
     Indication: ANKYLOSING SPONDYLITIS
     Dosage: 50 MG, ONCE WEEKLY
     Route: 058
     Dates: start: 20141108
  2. ALENIA                             /01479302/ [Concomitant]
     Indication: BRONCHITIS
     Dosage: UNK
  3. ALENIA                             /01479302/ [Concomitant]
     Indication: COUGH
  4. DIURIX                             /00022001/ [Concomitant]
     Dosage: 25 MG, ONCE A DAY
     Dates: start: 2013, end: 201508
  5. METHOTREXATE [Concomitant]
     Active Substance: METHOTREXATE
     Indication: ANKYLOSING SPONDYLITIS
     Dosage: 1 TABLET (2.5MG) 6X/DAY ONCE WEEKLY (EVERY WEDNESDAY)
     Dates: start: 2012, end: 201508
  6. LOSARTAN. [Concomitant]
     Active Substance: LOSARTAN
     Indication: HYPERTENSION
     Dosage: 50 MG, TWICE DAILY
     Dates: start: 201407
  7. CALCIUM [Concomitant]
     Active Substance: CALCIUM
     Dosage: UNK
     Dates: start: 2013, end: 201508
  8. HYDROCHLOROTHIAZIDE. [Concomitant]
     Active Substance: HYDROCHLOROTHIAZIDE
     Dosage: UNK
     Dates: start: 201502
  9. DULOXETINE HYDROCHLORIDE. [Concomitant]
     Active Substance: DULOXETINE HYDROCHLORIDE
     Indication: DEPRESSION
     Dosage: 60 MG, ONCE A DAY
     Dates: start: 201407
  10. BUSONID [Concomitant]
     Active Substance: BUDESONIDE
     Indication: ASTHMA
     Dosage: 2 DROPS EACH NOSTRIL (TOTAL OF 4 DROPS), UNSPECIFIED FREQUENCY
     Dates: start: 201409
  11. FOLIC ACID. [Concomitant]
     Active Substance: FOLIC ACID
     Dosage: UNK
     Dates: start: 2013
  12. ALENIA                             /01479302/ [Concomitant]
     Indication: ASTHMA
     Dosage: UNK (STRENGTH 50 MG)
     Dates: start: 201409

REACTIONS (16)
  - Injection site mass [Recovered/Resolved]
  - Pain [Unknown]
  - Mobility decreased [Not Recovered/Not Resolved]
  - Drug effect delayed [Recovered/Resolved]
  - Dyspnoea [Recovered/Resolved]
  - Injection site erythema [Recovered/Resolved]
  - Apnoea [Not Recovered/Not Resolved]
  - Bronchitis [Recovered/Resolved]
  - Cough [Recovered/Resolved]
  - Injection site pruritus [Recovered/Resolved]
  - Injection site swelling [Recovered/Resolved]
  - Injection site warmth [Recovered/Resolved]
  - Bursitis [Not Recovered/Not Resolved]
  - Cholelithiasis [Recovered/Resolved]
  - Asthma [Recovered/Resolved]
  - Injection site pain [Recovered/Resolved]

NARRATIVE: CASE EVENT DATE: 201410
